FAERS Safety Report 12259220 (Version 1)
Quarter: 2016Q2

REPORT INFORMATION
  Report Type: Spontaneous
  Country: US (occurrence: US)
  Receive Date: 20160412
  Receipt Date: 20160412
  Transmission Date: 20160815
  Serious: No
  Sender: FDA-Public Use
  Company Number: US-SA-2015SA082781

PATIENT
  Sex: Male
  Weight: 88.45 kg

DRUGS (2)
  1. ALLEGRA [Suspect]
     Active Substance: FEXOFENADINE HYDROCHLORIDE
     Indication: EYE PRURITUS
     Dosage: STARTED DRUG FROM ABOUT MID-APRIL ?STOPPED DRUG AT THE END OF MAY
     Route: 065
  2. ALLEGRA [Suspect]
     Active Substance: FEXOFENADINE HYDROCHLORIDE
     Indication: SEASONAL ALLERGY
     Dosage: STARTED DRUG FROM ABOUT MID-APRIL ?STOPPED DRUG AT THE END OF MAY
     Route: 065

REACTIONS (1)
  - Drug ineffective [Unknown]
